FAERS Safety Report 11531087 (Version 1)
Quarter: 2015Q3

REPORT INFORMATION
  Report Type: Spontaneous
  Country: US (occurrence: US)
  Receive Date: 20150903
  Receipt Date: 20150903
  Transmission Date: 20151125
  Serious: Yes (Other)
  Sender: FDA-Public Use
  Company Number: US-ELI_LILLY_AND_COMPANY-US201303006184

PATIENT
  Age: 41 Year
  Sex: Male

DRUGS (1)
  1. DULOXETINE HYDROCHLORIDE. [Suspect]
     Active Substance: DULOXETINE HYDROCHLORIDE
     Indication: GENERALISED ANXIETY DISORDER
     Dosage: 60 MG, UNK
     Dates: start: 20130314

REACTIONS (7)
  - Visual acuity reduced [Recovering/Resolving]
  - Insomnia [Recovering/Resolving]
  - Nervousness [Recovering/Resolving]
  - Depression [Recovering/Resolving]
  - Hot flush [Recovering/Resolving]
  - Feeling abnormal [Recovering/Resolving]
  - Paraesthesia [Recovering/Resolving]
